FAERS Safety Report 6421753-7 (Version None)
Quarter: 2009Q4

REPORT INFORMATION
  Report Type: 
  Country: None (occurrence: None)
  Receive Date: 20091030
  Receipt Date: 20091019
  Transmission Date: 20100525
  Serious: Yes (Hospitalization)
  Sender: FDA-Public Use
  Company Number: US-ROCHE-663076

PATIENT
  Sex: Male

DRUGS (11)
  1. CAPECITABINE [Suspect]
     Indication: PANCREATIC CARCINOMA
     Route: 065
     Dates: start: 20090804, end: 20090914
  2. BEVACIZUMAB [Suspect]
     Indication: PANCREATIC CARCINOMA
     Route: 065
     Dates: start: 20090804, end: 20090914
  3. DASATINIB [Suspect]
     Indication: PANCREATIC CARCINOMA
     Route: 048
     Dates: start: 20090804, end: 20090914
  4. OXALIPLATIN [Suspect]
     Indication: PANCREATIC CARCINOMA
     Route: 065
     Dates: start: 20090804, end: 20090914
  5. ZOFRAN [Concomitant]
  6. COMPAZINE [Concomitant]
  7. DOCUSATE [Concomitant]
  8. FLOMAX [Concomitant]
  9. RITALIN [Concomitant]
  10. HYDROCODONE [Concomitant]
  11. ATIVAN [Concomitant]

REACTIONS (3)
  - ANAEMIA [None]
  - MALIGNANT NEOPLASM PROGRESSION [None]
  - PLEURAL EFFUSION [None]
